FAERS Safety Report 5559333-8 (Version None)
Quarter: 2007Q4

REPORT INFORMATION
  Report Type: 
  Country: None (occurrence: None)
  Receive Date: 20071214
  Receipt Date: 20070925
  Transmission Date: 20080405
  Serious: No
  Sender: FDA-Public Use
  Company Number: US-ABBOTT-07P-163-0418925-00

PATIENT
  Sex: Female
  Weight: 65.83 kg

DRUGS (15)
  1. HUMIRA [Suspect]
     Indication: CROHN'S DISEASE
     Dosage: SYRINGE
     Route: 058
     Dates: start: 20070601, end: 20070905
  2. HUMIRA [Suspect]
     Dosage: PEN
     Route: 058
     Dates: start: 20070906, end: 20070919
  3. HUMIRA [Suspect]
     Dosage: SYRINGE
     Route: 058
     Dates: start: 20070920
  4. FUROSET WITH CODEINE [Suspect]
     Indication: HEADACHE
     Route: 048
     Dates: start: 20070922, end: 20070922
  5. FOLIC ACID [Concomitant]
     Indication: DRUG USE FOR UNKNOWN INDICATION
  6. PREDNISONE [Concomitant]
     Indication: DRUG USE FOR UNKNOWN INDICATION
  7. ZAFIRLUKAST [Concomitant]
     Indication: DRUG USE FOR UNKNOWN INDICATION
  8. CLARITIN [Concomitant]
     Indication: DRUG USE FOR UNKNOWN INDICATION
  9. TRANZODONE [Concomitant]
     Indication: DRUG USE FOR UNKNOWN INDICATION
  10. PANTOPRAZOLE SODIUM [Concomitant]
     Indication: DRUG USE FOR UNKNOWN INDICATION
  11. ATENOLOL [Concomitant]
     Indication: DRUG USE FOR UNKNOWN INDICATION
  12. SALBUTAMOL SULFATE [Concomitant]
     Indication: DRUG USE FOR UNKNOWN INDICATION
  13. ONDANSETRON HYDROCHLORIDE [Concomitant]
     Indication: DRUG USE FOR UNKNOWN INDICATION
  14. TIVANIDINE [Concomitant]
     Indication: DRUG USE FOR UNKNOWN INDICATION
  15. AZELASTINE HCL [Concomitant]
     Indication: DRUG USE FOR UNKNOWN INDICATION

REACTIONS (15)
  - ACCIDENTAL EXPOSURE [None]
  - ACUTE SINUSITIS [None]
  - ANALGESIC DRUG LEVEL DECREASED [None]
  - ASTHMA [None]
  - BLOOD SODIUM DECREASED [None]
  - HEADACHE [None]
  - HYPERSENSITIVITY [None]
  - INFLAMMATION [None]
  - LABORATORY TEST ABNORMAL [None]
  - LOSS OF CONSCIOUSNESS [None]
  - MONOCYTE COUNT INCREASED [None]
  - RASH MACULAR [None]
  - SINUSITIS [None]
  - ULTRASOUND SCAN ABNORMAL [None]
  - WHITE BLOOD CELL COUNT INCREASED [None]
